FAERS Safety Report 5195163-7 (Version None)
Quarter: 2006Q4

REPORT INFORMATION
  Report Type: 
  Country: None (occurrence: None)
  Receive Date: 20061229
  Receipt Date: 20061227
  Transmission Date: 20070319
  Serious: Yes (Other)
  Sender: FDA-Public Use
  Company Number: KE-BOEHRINGER INGELHEIM PHARMACEUTICALS, INC.-2006-DE-06877GD

PATIENT

DRUGS (3)
  1. NEVIRAPINE [Suspect]
     Indication: HIV INFECTION
  2. STAVUDINE [Suspect]
     Indication: HIV INFECTION
  3. LAMIVUDINE [Suspect]
     Indication: HIV INFECTION

REACTIONS (2)
  - HEPATIC STEATOSIS [None]
  - HYPERLACTACIDAEMIA [None]
